FAERS Safety Report 10518375 (Version 1)
Quarter: 2014Q4

REPORT INFORMATION
  Report Type: Spontaneous
  Country: AU (occurrence: AU)
  Receive Date: 20141015
  Receipt Date: 20141015
  Transmission Date: 20150528
  Serious: Yes (Other)
  Sender: FDA-Public Use
  Company Number: AU-ROXANE LABORATORIES, INC.-2014-RO-01568RO

PATIENT
  Age: 61 Year
  Sex: Male

DRUGS (3)
  1. QUETIAPINE FUMARATE. [Suspect]
     Active Substance: QUETIAPINE FUMARATE
     Indication: PSYCHIATRIC SYMPTOM
     Route: 065
  2. PREDNISOLONE. [Suspect]
     Active Substance: PREDNISOLONE
     Indication: CHOREA
     Dosage: 30 MG
     Route: 065
  3. AZATHIOPRINE. [Suspect]
     Active Substance: AZATHIOPRINE
     Indication: CHOREA
     Route: 065

REACTIONS (2)
  - Delirium [Unknown]
  - Nausea [Unknown]
